FAERS Safety Report 8013898-5 (Version None)
Quarter: 2011Q4

REPORT INFORMATION
  Report Type: 
  Country: None (occurrence: None)
  Receive Date: 20111229
  Receipt Date: 20111219
  Transmission Date: 20120403
  Serious: Yes (Hospitalization)
  Sender: FDA-Public Use
  Company Number: FR-ROCHE-1023502

PATIENT
  Age: 22 Year
  Sex: Female

DRUGS (6)
  1. MABTHERA [Suspect]
     Indication: IDIOPATHIC THROMBOCYTOPENIC PURPURA
     Dates: start: 20110722, end: 20111007
  2. NPLATE [Suspect]
     Dates: start: 20111001
  3. NPLATE [Suspect]
     Indication: IDIOPATHIC THROMBOCYTOPENIC PURPURA
     Dates: start: 20110917
  4. NPLATE [Suspect]
     Dates: start: 20110924
  5. CYCLOSPORINE [Suspect]
     Indication: PRODUCT USED FOR UNKNOWN INDICATION
  6. MABTHERA [Suspect]
     Dates: start: 20111017

REACTIONS (1)
  - GUILLAIN-BARRE SYNDROME [None]
